FAERS Safety Report 19109749 (Version 2)
Quarter: 2021Q2

REPORT INFORMATION
  Report Type: Report from Study
  Country: None (occurrence: US)
  Receive Date: 20210409
  Receipt Date: 20210418
  Transmission Date: 20210717
  Serious: Yes (Hospitalization)
  Sender: FDA-Public Use
  Company Number: US-ABBVIE-21K-163-3848571-00

PATIENT
  Age: 67 Year
  Sex: Female
  Weight: 87.62 kg

DRUGS (1)
  1. SKYRIZI [Suspect]
     Active Substance: RISANKIZUMAB-RZAA
     Indication: PSORIASIS
     Route: 058
     Dates: start: 202008

REACTIONS (6)
  - Pneumonia [Recovered/Resolved]
  - Back pain [Recovered/Resolved]
  - Feeling abnormal [Recovering/Resolving]
  - COVID-19 [Recovered/Resolved]
  - Kidney infection [Not Recovered/Not Resolved]
  - Alopecia [Not Recovered/Not Resolved]

NARRATIVE: CASE EVENT DATE: 202012
